FAERS Safety Report 17605612 (Version 1)
Quarter: 2020Q1

REPORT INFORMATION
  Report Type: Spontaneous
  Country: IT (occurrence: IT)
  Receive Date: 20200331
  Receipt Date: 20200331
  Transmission Date: 20200409
  Serious: Yes (Hospitalization)
  Sender: FDA-Public Use
  Company Number: IT-PFIZER INC-2020132614

PATIENT
  Age: 40 Year
  Sex: Male

DRUGS (8)
  1. ACETYLSALICYLIC ACID [Concomitant]
     Active Substance: ASPIRIN
  2. CARVASIN [Concomitant]
     Active Substance: ISOSORBIDE DINITRATE
  3. METOPROLOLO [Concomitant]
  4. TORVAST [Suspect]
     Active Substance: ATORVASTATIN
     Dates: start: 20191220
  5. TRIATEC [RAMIPRIL] [Concomitant]
     Active Substance: RAMIPRIL
  6. BRILIQUE [Concomitant]
     Active Substance: TICAGRELOR
  7. INSULIN [Concomitant]
     Active Substance: INSULIN NOS
  8. ABASAGLAR [Concomitant]
     Active Substance: INSULIN GLARGINE

REACTIONS (3)
  - Tremor [Recovering/Resolving]
  - Myalgia [Recovering/Resolving]
  - Presyncope [Recovering/Resolving]

NARRATIVE: CASE EVENT DATE: 20191230
